FAERS Safety Report 12570942 (Version 1)
Quarter: 2016Q3

REPORT INFORMATION
  Report Type: Spontaneous
  Country: US (occurrence: US)
  Receive Date: 20160719
  Receipt Date: 20160719
  Transmission Date: 20161109
  Serious: Yes (Hospitalization)
  Sender: FDA-Public Use
  Company Number: US-AMGEN-USASP2016089890

PATIENT
  Age: 59 Year
  Sex: Female

DRUGS (1)
  1. PROLIA [Suspect]
     Active Substance: DENOSUMAB
     Indication: OSTEOPOROSIS POSTMENOPAUSAL
     Dosage: UNK
     Route: 065
     Dates: start: 20160305

REACTIONS (13)
  - Stomatitis [Unknown]
  - Pruritus [Unknown]
  - General physical health deterioration [Unknown]
  - Tearfulness [Unknown]
  - Alopecia [Unknown]
  - Swelling face [Unknown]
  - Local swelling [Unknown]
  - Nail disorder [Unknown]
  - Arthralgia [Unknown]
  - White blood cell count abnormal [Unknown]
  - Swelling [Unknown]
  - Back pain [Unknown]
  - Bone pain [Unknown]
